FAERS Safety Report 12988864 (Version 1)
Quarter: 2016Q4

REPORT INFORMATION
  Report Type: Spontaneous
  Country: US (occurrence: US)
  Receive Date: 20161130
  Receipt Date: 20161130
  Transmission Date: 20170207
  Serious: No
  Sender: FDA-Public Use
  Company Number: US-ELI_LILLY_AND_COMPANY-US201607006561

PATIENT
  Sex: Female
  Weight: 74.38 kg

DRUGS (4)
  1. CYMBALTA [Suspect]
     Active Substance: DULOXETINE HYDROCHLORIDE
     Dosage: 20 MG, QD
     Route: 048
  2. CYMBALTA [Suspect]
     Active Substance: DULOXETINE HYDROCHLORIDE
     Dosage: 20 MG, QOD
     Route: 048
     Dates: start: 20141119
  3. CYMBALTA [Suspect]
     Active Substance: DULOXETINE HYDROCHLORIDE
     Indication: MAJOR DEPRESSION
     Dosage: 30 MG, QD
     Route: 048
     Dates: start: 20130131
  4. CYMBALTA [Suspect]
     Active Substance: DULOXETINE HYDROCHLORIDE
     Dosage: 20 MG, UNKNOWN
     Route: 048

REACTIONS (16)
  - Confusional state [Unknown]
  - Affect lability [Unknown]
  - Tremor [Unknown]
  - Night sweats [Unknown]
  - Drug withdrawal syndrome [Unknown]
  - Dysphoria [Unknown]
  - Irritability [Unknown]
  - Anxiety [Unknown]
  - Back pain [Unknown]
  - Nausea [Unknown]
  - Hyperhidrosis [Unknown]
  - Vertigo [Unknown]
  - Insomnia [Unknown]
  - Paraesthesia [Unknown]
  - Agitation [Unknown]
  - Dizziness [Unknown]
